FAERS Safety Report 9727049 (Version 2)
Quarter: 2014Q1

REPORT INFORMATION
  Report Type: Spontaneous
  Country: US (occurrence: US)
  Receive Date: 20131203
  Receipt Date: 20140116
  Transmission Date: 20141002
  Serious: Yes (Other)
  Sender: FDA-Public Use
  Company Number: US-PFIZER INC-2013344502

PATIENT
  Age: 64 Year
  Sex: Female
  Weight: 65.76 kg

DRUGS (5)
  1. RELPAX [Suspect]
     Indication: MIGRAINE
     Dosage: 40 MG, AS NEEDED
     Dates: start: 2005
  2. RELPAX [Suspect]
     Dosage: UNK
  3. IBUPROFEN [Concomitant]
     Indication: MIGRAINE
     Dosage: UNK
  4. TYLENOL [Concomitant]
     Indication: MIGRAINE
     Dosage: UNK
  5. EXCEDRIN MIGRAINE [Concomitant]
     Indication: MIGRAINE
     Dosage: UNK

REACTIONS (3)
  - Choking [Recovered/Resolved]
  - Throat tightness [Unknown]
  - Throat irritation [Recovered/Resolved]
